FAERS Safety Report 8118149-9 (Version None)
Quarter: 2011Q4

REPORT INFORMATION
  Report Type: 
  Country: None (occurrence: None)
  Receive Date: 20111227
  Receipt Date: 20111011
  Transmission Date: 20120403
  Serious: No
  Sender: FDA-Public Use
  Company Number: PHEH2011US06610

PATIENT
  Age: 45 Year
  Sex: Female
  Weight: 54.4 kg

DRUGS (7)
  1. LEXAPRO [Concomitant]
  2. SUMATRIPTAN [Concomitant]
  3. MULTIVITAMINS (ASCORBIC ACID, ERGOCALCIFEROL, FOLIC ACID, NICOTINAMIDE [Concomitant]
  4. GILENYA [Suspect]
     Dosage: 0.5 MG, EVERY DAY, ORAL
     Route: 048
  5. POLYTHYLENE GLYCOL (MACROGOL) [Concomitant]
  6. CALTRATE +D (CALCIUM CARBONATE, VITAMIN D NOS) [Concomitant]
  7. NEXIUM [Concomitant]

REACTIONS (1)
  - DYSPNOEA [None]
